FAERS Safety Report 5804987-1 (Version None)
Quarter: 2008Q3

REPORT INFORMATION
  Report Type: 
  Country: None (occurrence: None)
  Receive Date: 20080709
  Receipt Date: 20080630
  Transmission Date: 20090109
  Serious: Yes (Other)
  Sender: FDA-Public Use
  Company Number: BR-PFIZER INC-2008055105

PATIENT
  Sex: Female

DRUGS (2)
  1. DEPO-PROVERA SUSPENSION/INJ [Suspect]
     Indication: CONTRACEPTION
     Dates: start: 20080602, end: 20080602
  2. DRUG, UNSPECIFIED [Concomitant]
     Indication: STOMACH DISCOMFORT
     Route: 065

REACTIONS (6)
  - BACK PAIN [None]
  - HEPATIC ENZYME ABNORMAL [None]
  - HEPATITIS [None]
  - JAUNDICE [None]
  - MENORRHAGIA [None]
  - NAUSEA [None]
